FAERS Safety Report 26053272 (Version 2)
Quarter: 2025Q4

REPORT INFORMATION
  Report Type: Spontaneous
  Country: JP (occurrence: JP)
  Receive Date: 20251117
  Receipt Date: 20251226
  Transmission Date: 20260117
  Serious: Yes (Other)
  Sender: OTSUKA
  Company Number: JP-MMM-Otsuka-0TM32RWI

PATIENT
  Age: 10 Decade
  Sex: Female

DRUGS (1)
  1. REXULTI [Suspect]
     Active Substance: BREXPIPRAZOLE
     Indication: Product used for unknown indication
     Dosage: UNK
     Route: 061

REACTIONS (4)
  - Pyrexia [Recovered/Resolved]
  - Vomiting [Recovered/Resolved]
  - Dizziness [Recovered/Resolved]
  - Condition aggravated [Recovered/Resolved]
